FAERS Safety Report 14564205 (Version 15)
Quarter: 2020Q4

REPORT INFORMATION
  Report Type: Report from Study
  Country: DE (occurrence: DE)
  Receive Date: 20180222
  Receipt Date: 20201230
  Transmission Date: 20210113
  Serious: Yes (Death, Life-Threatening, Hospitalization, Other)
  Sender: FDA-Public Use
  Company Number: DE-BRISTOL-MYERS SQUIBB COMPANY-BMS-2017-121027

PATIENT
  Age: 98 Year
  Sex: Male
  Weight: 78 kg

DRUGS (10)
  1. NIVOLUMAB [Suspect]
     Active Substance: NIVOLUMAB
     Dosage: 78.15 ABSENT, Q3WK
     Route: 065
     Dates: start: 20170509, end: 20170509
  2. NIVOLUMAB [Suspect]
     Active Substance: NIVOLUMAB
     Dosage: 73.33 ABSENT, Q3WK
     Route: 065
     Dates: start: 20170620, end: 20170620
  3. IPILIMUMAB [Suspect]
     Active Substance: IPILIMUMAB
     Indication: MALIGNANT MELANOMA
     Dosage: 243.89 ABSENT, Q3WK
     Route: 065
     Dates: start: 20170418, end: 20170418
  4. IPILIMUMAB [Suspect]
     Active Substance: IPILIMUMAB
     Dosage: 227.04 ABSENT, Q3WK
     Route: 065
     Dates: start: 20170620, end: 20170620
  5. METOPROLOL SUCCINATE. [Concomitant]
     Active Substance: METOPROLOL SUCCINATE
     Indication: PRODUCT USED FOR UNKNOWN INDICATION
     Dosage: 50 MG, QD
     Route: 048
  6. NIVOLUMAB [Suspect]
     Active Substance: NIVOLUMAB
     Indication: MALIGNANT MELANOMA
     Dosage: 78.25 ABSENT, Q3WK
     Route: 065
     Dates: start: 20170418, end: 20170418
  7. NIVOLUMAB [Suspect]
     Active Substance: NIVOLUMAB
     Dosage: 81.5 ABSENT, Q3WK
     Route: 065
     Dates: start: 20170530, end: 20170530
  8. IPILIMUMAB [Suspect]
     Active Substance: IPILIMUMAB
     Dosage: 239.51 ABSENT, Q3WK
     Route: 065
     Dates: start: 20170530, end: 20170530
  9. IPILIMUMAB [Suspect]
     Active Substance: IPILIMUMAB
     Dosage: 243.89 ABSENT, Q3WK
     Dates: start: 20170509, end: 20170509
  10. RAMIPRIL. [Concomitant]
     Active Substance: RAMIPRIL
     Indication: PRODUCT USED FOR UNKNOWN INDICATION
     Dosage: 5 MG, QD
     Route: 048

REACTIONS (7)
  - Toxicity to various agents [Fatal]
  - Off label use [Unknown]
  - Intentional product use issue [Unknown]
  - Acute kidney injury [Recovered/Resolved]
  - Guillain-Barre syndrome [Recovering/Resolving]
  - Bacterial infection [Fatal]
  - Malignant neoplasm progression [Unknown]

NARRATIVE: CASE EVENT DATE: 20170627
